FAERS Safety Report 4588550-9 (Version None)
Quarter: 2005Q1

REPORT INFORMATION
  Report Type: 
  Country: None (occurrence: None)
  Receive Date: 20050216
  Receipt Date: 20050216
  Transmission Date: 20050727
  Serious: No
  Sender: FDA-Public Use
  Company Number: None

PATIENT
  Age: 72 Year
  Sex: Male
  Weight: 79.3795 kg

DRUGS (1)
  1. ISONIAZIDE TAB [Suspect]
     Indication: TUBERCULIN TEST POSITIVE
     Dosage: 600MG    TWICE WEEKLY    ORAL
     Route: 048

REACTIONS (3)
  - ABDOMINAL DISCOMFORT [None]
  - BLINDNESS [None]
  - HYPOAESTHESIA [None]
